FAERS Safety Report 23605269 (Version 1)
Quarter: 2024Q1

REPORT INFORMATION
  Report Type: Spontaneous
  Country: US (occurrence: None)
  Receive Date: 20240306
  Receipt Date: 20240306
  Transmission Date: 20240410
  Serious: Yes (unspecified)
  Sender: FDA-Public Use
  Company Number: None

PATIENT
  Age: 26 Year
  Sex: Female
  Weight: 56.25 kg

DRUGS (2)
  1. SPIRONOLACTONE [Suspect]
     Active Substance: SPIRONOLACTONE
     Indication: Alopecia
     Dosage: OTHER QUANTITY : 1 CAPSULE(S);?
     Route: 048
     Dates: start: 20231224, end: 20240305
  2. MINOXIDIL [Suspect]
     Active Substance: MINOXIDIL
     Indication: Alopecia
     Dosage: OTHER QUANTITY : 1.4 CAPSULE(S);?FREQUENCY : DAILY;?
     Route: 048
     Dates: start: 20231224, end: 20240306

REACTIONS (15)
  - Hypoaesthesia [None]
  - Swelling [None]
  - Feeling hot [None]
  - Hypoaesthesia [None]
  - Drug monitoring procedure not performed [None]
  - Menstrual disorder [None]
  - Breast tenderness [None]
  - Chromaturia [None]
  - Urine odour abnormal [None]
  - Nightmare [None]
  - Somnolence [None]
  - Nausea [None]
  - Blood pressure decreased [None]
  - Confusional state [None]
  - Sexual dysfunction [None]

NARRATIVE: CASE EVENT DATE: 20240303
